FAERS Safety Report 19993440 (Version 1)
Quarter: 2021Q4

REPORT INFORMATION
  Report Type: Spontaneous
  Country: GB (occurrence: GB)
  Receive Date: 20211026
  Receipt Date: 20211026
  Transmission Date: 20220303
  Serious: Yes (Other)
  Sender: FDA-Public Use
  Company Number: GB-BIO PRODUCTS LABORATORY LTD-2120984

PATIENT
  Age: 48 Year
  Sex: Female

DRUGS (4)
  1. HUMAN IMMUNOGLOBULIN G [Suspect]
     Active Substance: HUMAN IMMUNOGLOBULIN G
     Indication: Stiff person syndrome
     Route: 042
  2. RITUXIMAB [Concomitant]
     Active Substance: RITUXIMAB
  3. DIAZEPAM [Concomitant]
     Active Substance: DIAZEPAM
  4. BACLOFEN [Concomitant]
     Active Substance: BACLOFEN

REACTIONS (3)
  - Hepatitis B core antigen positive [Unknown]
  - Drug effective for unapproved indication [Unknown]
  - Off label use [Unknown]
